FAERS Safety Report 8548550-0 (Version None)
Quarter: 2012Q3

REPORT INFORMATION
  Report Type: 
  Country: None (occurrence: None)
  Receive Date: 20120720
  Receipt Date: 20120720
  Transmission Date: 20120928
  Serious: Yes (Other)
  Sender: FDA-Public Use
  Company Number: None

PATIENT
  Sex: Male

DRUGS (8)
  1. BUSPIRONE HCL [Concomitant]
  2. LOSARTAN POTASSIUM [Concomitant]
  3. PRAVASTATIN SODIUM [Concomitant]
  4. FLUOXETINE HCL [Concomitant]
  5. GARAPENTIN [Concomitant]
  6. TRAMADOL HCL [Suspect]
     Indication: ARTHRALGIA
     Dosage: 50 MG EVERY 8 HOURS PO
     Route: 048
  7. OMEPRAZOLE [Concomitant]
  8. KLOR-CON [Concomitant]

REACTIONS (4)
  - HYPERHIDROSIS [None]
  - HALLUCINATION [None]
  - DEPRESSION [None]
  - HEART RATE IRREGULAR [None]
